FAERS Safety Report 16373378 (Version 3)
Quarter: 2019Q3

REPORT INFORMATION
  Report Type: Report from Study
  Country: US (occurrence: US)
  Receive Date: 20190530
  Receipt Date: 20190809
  Transmission Date: 20191004
  Serious: No
  Sender: FDA-Public Use
  Company Number: US-SA-2019SA143711

PATIENT
  Age: 81 Year
  Sex: Male

DRUGS (1)
  1. ALIROCUMAB [Suspect]
     Active Substance: ALIROCUMAB
     Indication: BLOOD CHOLESTEROL
     Dosage: 75 MG, QOW
     Route: 058
     Dates: start: 20190508

REACTIONS (3)
  - Hyperhidrosis [Unknown]
  - Product use issue [Unknown]
  - Night sweats [Recovering/Resolving]

NARRATIVE: CASE EVENT DATE: 2019
